FAERS Safety Report 18213155 (Version 1)
Quarter: 2020Q3

REPORT INFORMATION
  Report Type: Spontaneous
  Country: US (occurrence: US)
  Receive Date: 20200831
  Receipt Date: 20200831
  Transmission Date: 20201103
  Serious: Yes (Other)
  Sender: FDA-Public Use
  Company Number: US-ASTRAZENECA-2020SF08391

PATIENT
  Sex: Female

DRUGS (1)
  1. IMFINZI [Suspect]
     Active Substance: DURVALUMAB
     Route: 042

REACTIONS (8)
  - Optic nerve injury [Unknown]
  - Muscle disorder [Unknown]
  - Multi-organ disorder [Unknown]
  - Myalgia [Unknown]
  - Cardiac disorder [Unknown]
  - Eye pain [Unknown]
  - Muscular weakness [Unknown]
  - Visual impairment [Unknown]
